FAERS Safety Report 5481029-1 (Version None)
Quarter: 2007Q4

REPORT INFORMATION
  Report Type: 
  Country: None (occurrence: None)
  Receive Date: 20071004
  Receipt Date: 20070919
  Transmission Date: 20080405
  Serious: Yes (Other)
  Sender: FDA-Public Use
  Company Number: 2007AP000895

PATIENT
  Age: 44 Year
  Sex: Male

DRUGS (2)
  1. DICLOFENAC SODIUM [Suspect]
     Indication: LIGAMENT RUPTURE
     Dosage: 75 MG; 1X PO
     Route: 048
     Dates: start: 20070718, end: 20070718
  2. DICLOFENAC SODIUM [Suspect]
     Indication: LIGAMENT RUPTURE
     Dosage: 75 MG; 1X PO
     Route: 048
     Dates: start: 20070812, end: 20070812

REACTIONS (3)
  - ABDOMINAL PAIN [None]
  - ANAPHYLACTIC SHOCK [None]
  - ELECTROCARDIOGRAM ST SEGMENT DEPRESSION [None]
